FAERS Safety Report 4523995-4 (Version None)
Quarter: 2004Q4

REPORT INFORMATION
  Report Type: 
  Country: None (occurrence: None)
  Receive Date: 20041209
  Receipt Date: 20040920
  Transmission Date: 20050328
  Serious: Yes (Death, Hospitalization)
  Sender: FDA-Public Use
  Company Number: ATO-04-0780

PATIENT
  Sex: Female

DRUGS (1)
  1. TRISENOX [Suspect]

REACTIONS (1)
  - SUDDEN DEATH [None]
